FAERS Safety Report 20863040 (Version 2)
Quarter: 2022Q2

REPORT INFORMATION
  Report Type: Report from Study
  Country: US (occurrence: US)
  Receive Date: 20220523
  Receipt Date: 20220526
  Transmission Date: 20220720
  Serious: No
  Sender: FDA-Public Use
  Company Number: US-NOVARTISTESTPH-NVSC2022US113973

PATIENT
  Age: 46 Year
  Sex: Female

DRUGS (1)
  1. KESIMPTA [Suspect]
     Active Substance: OFATUMUMAB
     Indication: Relapsing multiple sclerosis
     Dosage: 20 MG, QMO
     Route: 058
     Dates: start: 20220403

REACTIONS (9)
  - Rash [Unknown]
  - Alopecia [Unknown]
  - Asthenia [Unknown]
  - Raynaud^s phenomenon [Unknown]
  - Fibromyalgia [Unknown]
  - Psoriasis [Unknown]
  - Rash pruritic [Unknown]
  - Rash erythematous [Unknown]
  - Blister [Unknown]

NARRATIVE: CASE EVENT DATE: 20220403
